FAERS Safety Report 14220707 (Version 2)
Quarter: 2017Q4

REPORT INFORMATION
  Report Type: Spontaneous
  Country: US (occurrence: US)
  Receive Date: 20171124
  Receipt Date: 20171218
  Transmission Date: 20180321
  Serious: Yes (Hospitalization, Other)
  Sender: FDA-Public Use
  Company Number: US-009507513-1711USA007487

PATIENT
  Age: 81 Year
  Sex: Female

DRUGS (3)
  1. BELSOMRA [Suspect]
     Active Substance: SUVOREXANT
     Indication: INSOMNIA
     Dosage: 1 DF, QD
     Route: 048
     Dates: start: 201706
  2. BELSOMRA [Suspect]
     Active Substance: SUVOREXANT
     Indication: INSOMNIA
     Dosage: 1 DF, QD
     Route: 048
     Dates: start: 2016, end: 201706
  3. ATIVAN [Concomitant]
     Active Substance: LORAZEPAM

REACTIONS (3)
  - Loss of consciousness [Recovering/Resolving]
  - Urinary tract infection [Recovering/Resolving]
  - Drug ineffective [Recovering/Resolving]

NARRATIVE: CASE EVENT DATE: 201706
